FAERS Safety Report 5013655-8 (Version None)
Quarter: 2006Q2

REPORT INFORMATION
  Report Type: 
  Country: None (occurrence: None)
  Receive Date: 20060530
  Receipt Date: 20060524
  Transmission Date: 20061013
  Serious: Yes (Hospitalization)
  Sender: FDA-Public Use
  Company Number: FR-GLAXOSMITHKLINE-B0425052A

PATIENT
  Age: 26 Year
  Sex: Male

DRUGS (2)
  1. AUGMENTIN '125' [Suspect]
     Dosage: 1G CUMULATIVE DOSE
     Route: 048
     Dates: start: 20050715, end: 20050715
  2. SURGAM [Concomitant]
     Dosage: 400MG CUMULATIVE DOSE
     Route: 048
     Dates: start: 20050715, end: 20050715

REACTIONS (5)
  - ANAPHYLACTOID REACTION [None]
  - DIARRHOEA [None]
  - LOSS OF CONSCIOUSNESS [None]
  - PRURITUS [None]
  - VOMITING [None]
